FAERS Safety Report 7255067-2 (Version None)
Quarter: 2011Q1

REPORT INFORMATION
  Report Type: 
  Country: None (occurrence: None)
  Receive Date: 20110129
  Receipt Date: 20100201
  Transmission Date: 20110831
  Serious: No
  Sender: FDA-Public Use
  Company Number: US-ABBOTT-10P-163-0623936-00

PATIENT
  Sex: Female
  Weight: 53.572 kg

DRUGS (1)
  1. HUMIRA [Suspect]
     Indication: RHEUMATOID ARTHRITIS
     Dates: start: 20080101, end: 20090801

REACTIONS (8)
  - PAIN IN EXTREMITY [None]
  - NASOPHARYNGITIS [None]
  - CHEST PAIN [None]
  - DYSPHONIA [None]
  - PRODUCTIVE COUGH [None]
  - HAND DEFORMITY [None]
  - ARTHRITIS [None]
  - LOWER RESPIRATORY TRACT INFECTION [None]
